FAERS Safety Report 4353947-9 (Version None)
Quarter: 2004Q2

REPORT INFORMATION
  Report Type: 
  Country: None (occurrence: None)
  Receive Date: 20040506
  Receipt Date: 20040209
  Transmission Date: 20050107
  Serious: No
  Sender: FDA-Public Use
  Company Number: US-GLAXOSMITHKLINE-A0497228A

PATIENT
  Age: 75 Year
  Sex: Female

DRUGS (1)
  1. AVANDAMET [Suspect]
     Dosage: 2MG TWICE PER DAY
     Route: 048

REACTIONS (1)
  - ANXIETY [None]
